FAERS Safety Report 18204840 (Version 1)
Quarter: 2020Q3

REPORT INFORMATION
  Report Type: Spontaneous
  Country: FR (occurrence: FR)
  Receive Date: 20200827
  Receipt Date: 20200827
  Transmission Date: 20201103
  Serious: Yes (Hospitalization)
  Sender: FDA-Public Use
  Company Number: NVSC2020FR235121

PATIENT
  Age: 55 Year
  Sex: Male

DRUGS (2)
  1. AMOXICILLINE [Suspect]
     Active Substance: AMOXICILLIN
     Indication: ANTIBIOTIC THERAPY
     Dosage: UNK
     Route: 048
     Dates: start: 201910, end: 201910
  2. EUPHON (CODEINE\SODIUM FORMATE\ACONITUM NAPELLUS TINCTURE\SISYMBRIUM OFFICINALE SYRUP) [Suspect]
     Active Substance: CODEINE\SISYMBRIUM OFFICINALE WHOLE
     Indication: PAIN
     Dosage: UNK
     Route: 048
     Dates: start: 201910, end: 201910

REACTIONS (3)
  - Gastrointestinal disorder [Recovered/Resolved]
  - Malaise [Recovered/Resolved]
  - Urticaria [Recovered/Resolved]

NARRATIVE: CASE EVENT DATE: 201910
